FAERS Safety Report 21925192 (Version 1)
Quarter: 2023Q1

REPORT INFORMATION
  Report Type: Spontaneous
  Country: PH (occurrence: PH)
  Receive Date: 20230130
  Receipt Date: 20230130
  Transmission Date: 20230417
  Serious: Yes (Death, Hospitalization)
  Sender: FDA-Public Use
  Company Number: PH-STRIDES ARCOLAB LIMITED-2023SP001264

PATIENT
  Age: 3 Decade
  Sex: Male

DRUGS (11)
  1. PREDNISOLONE [Suspect]
     Active Substance: PREDNISOLONE
     Indication: Supportive care
     Dosage: UNK
     Route: 065
  2. REMDESIVIR [Suspect]
     Active Substance: REMDESIVIR
     Indication: COVID-19
     Dosage: UNK
     Route: 065
  3. RIFAMPIN [Suspect]
     Active Substance: RIFAMPIN
     Indication: Pulmonary tuberculosis
     Dosage: UNK
     Route: 065
  4. RIFAMPIN [Suspect]
     Active Substance: RIFAMPIN
     Dosage: UNK
     Route: 065
  5. ISONIAZID [Suspect]
     Active Substance: ISONIAZID
     Indication: Pulmonary tuberculosis
     Dosage: UNK
     Route: 065
  6. ISONIAZID [Suspect]
     Active Substance: ISONIAZID
     Dosage: UNK
     Route: 065
  7. FLUCONAZOLE [Suspect]
     Active Substance: FLUCONAZOLE
     Indication: Candida infection
     Dosage: UNK
     Route: 065
  8. EFAVIRENZ\LAMIVUDINE\TENOFOVIR DISOPROXIL FUMARATE [Suspect]
     Active Substance: EFAVIRENZ\LAMIVUDINE\TENOFOVIR DISOPROXIL FUMARATE
     Indication: HIV infection
     Dosage: UNK (FROM DAY 6)
     Route: 065
  9. COTRIMOXAZOLE [Concomitant]
     Active Substance: SULFAMETHOXAZOLE\TRIMETHOPRIM
     Indication: Pneumonia bacterial
     Dosage: UNK
     Route: 065
  10. CEFTAZIDIME [Concomitant]
     Active Substance: CEFTAZIDIME
     Indication: Pneumonia bacterial
     Dosage: UNK
     Route: 065
  11. AZITHROMYCIN [Concomitant]
     Active Substance: AZITHROMYCIN
     Indication: Pneumonia bacterial
     Dosage: UNK
     Route: 065

REACTIONS (5)
  - Pneumonia [Fatal]
  - Drug ineffective [Fatal]
  - Acute respiratory failure [Unknown]
  - Septic shock [Unknown]
  - Enterobacter infection [Unknown]
